FAERS Safety Report 7798892-1 (Version None)
Quarter: 2011Q4

REPORT INFORMATION
  Report Type: 
  Country: None (occurrence: None)
  Receive Date: 20111006
  Receipt Date: 20110926
  Transmission Date: 20120403
  Serious: Yes (Other)
  Sender: FDA-Public Use
  Company Number: US-JNJFOC-20111000223

PATIENT
  Sex: Female

DRUGS (2)
  1. ALCOHOL [Suspect]
     Indication: PRODUCT USED FOR UNKNOWN INDICATION
     Route: 065
  2. TOPAMAX [Suspect]
     Indication: BENIGN INTRACRANIAL HYPERTENSION
     Dosage: FOR OVER A YEAR
     Route: 048

REACTIONS (6)
  - BLOOD ALCOHOL INCREASED [None]
  - BALANCE DISORDER [None]
  - PAPILLOEDEMA [None]
  - DRUG PRESCRIBING ERROR [None]
  - MEMORY IMPAIRMENT [None]
  - OCULAR HYPERAEMIA [None]
